FAERS Safety Report 6184364-7 (Version None)
Quarter: 2009Q2

REPORT INFORMATION
  Report Type: 
  Country: None (occurrence: None)
  Receive Date: 20090508
  Receipt Date: 20090501
  Transmission Date: 20091009
  Serious: Yes (Other)
  Sender: FDA-Public Use
  Company Number: A0781644A

PATIENT
  Age: 47 Year
  Sex: Female

DRUGS (9)
  1. REQUIP XL [Suspect]
     Indication: PARKINSON'S DISEASE
     Dosage: 8MG PER DAY
     Route: 048
     Dates: start: 20090428
  2. REQUIP [Suspect]
     Indication: PARKINSON'S DISEASE
     Dosage: 3MG FOUR TIMES PER DAY
     Route: 048
     Dates: start: 20071101, end: 20090423
  3. ROPINIROLE [Suspect]
     Indication: PARKINSON'S DISEASE
     Dosage: 3MG FOUR TIMES PER DAY
     Route: 048
     Dates: start: 20090401, end: 20090423
  4. LUNESTA [Suspect]
     Indication: SLEEP DISORDER
     Dates: start: 20090428
  5. CARBIDOPA [Concomitant]
  6. LEXAPRO [Concomitant]
  7. ATIVAN [Concomitant]
  8. VALIUM [Concomitant]
  9. PERCOCET [Concomitant]

REACTIONS (7)
  - DRUG INEFFECTIVE [None]
  - DYSTONIA [None]
  - HALLUCINATION [None]
  - INSOMNIA [None]
  - OEDEMA PERIPHERAL [None]
  - PRODUCT SUBSTITUTION ISSUE [None]
  - WITHDRAWAL SYNDROME [None]
